FAERS Safety Report 16940913 (Version 3)
Quarter: 2020Q4

REPORT INFORMATION
  Report Type: Spontaneous
  Country: US (occurrence: US)
  Receive Date: 20191021
  Receipt Date: 20201222
  Transmission Date: 20210113
  Serious: Yes (Other)
  Sender: FDA-Public Use
  Company Number: US-RECKITT BENCKISER HEALTHCARE INT LIMITED-RB-91113-2019

PATIENT
  Age: 17 Year
  Sex: Male

DRUGS (1)
  1. DELSYM [Suspect]
     Active Substance: DEXTROMETHORPHAN
     Indication: PRODUCT USED FOR UNKNOWN INDICATION
     Dosage: TOOK ENTIRE BOTTLE OF THE PRODUCT AT AN UNKNOWN FREQUENCY
     Route: 065

REACTIONS (4)
  - Fatigue [Not Recovered/Not Resolved]
  - Overdose [Not Recovered/Not Resolved]
  - Dizziness [Not Recovered/Not Resolved]
  - Incoherent [Recovered/Resolved]
